FAERS Safety Report 10542443 (Version 1)
Quarter: 2014Q4

REPORT INFORMATION
  Report Type: Spontaneous
  Country: GB (occurrence: GB)
  Receive Date: 20141027
  Receipt Date: 20141027
  Transmission Date: 20150529
  Serious: Yes (Death, Other)
  Sender: FDA-Public Use
  Company Number: GB-AUROBINDO-AUR-APL-2014-11058

PATIENT
  Age: 18 Year
  Sex: Female

DRUGS (6)
  1. SERTRALINE [Suspect]
     Active Substance: SERTRALINE HYDROCHLORIDE
     Indication: EPILEPSY
     Dosage: UNK
     Route: 065
  2. SERTRALINE [Suspect]
     Active Substance: SERTRALINE HYDROCHLORIDE
     Indication: IMPULSE-CONTROL DISORDER
  3. DEPAKOTE [Suspect]
     Active Substance: DIVALPROEX SODIUM
     Indication: EPILEPSY
     Dosage: UNK
     Route: 065
     Dates: start: 200703, end: 2008
  4. DEPAKOTE [Suspect]
     Active Substance: DIVALPROEX SODIUM
     Indication: IMPULSE-CONTROL DISORDER
  5. DIAZEPAM. [Suspect]
     Active Substance: DIAZEPAM
     Indication: IMPULSE-CONTROL DISORDER
  6. DIAZEPAM. [Suspect]
     Active Substance: DIAZEPAM
     Indication: EPILEPSY
     Dosage: UNK
     Route: 065

REACTIONS (10)
  - Impulsive behaviour [Unknown]
  - Overdose [Unknown]
  - Malaise [Unknown]
  - Intentional self-injury [Unknown]
  - Post-traumatic stress disorder [Unknown]
  - Asphyxia [Fatal]
  - Personality disorder [Unknown]
  - Confusional state [Unknown]
  - Social avoidant behaviour [Unknown]
  - Mood swings [Unknown]

NARRATIVE: CASE EVENT DATE: 20080301
